FAERS Safety Report 8234805-6 (Version None)
Quarter: 2012Q1

REPORT INFORMATION
  Report Type: 
  Country: None (occurrence: None)
  Receive Date: 20120322
  Receipt Date: 20120307
  Transmission Date: 20120608
  Serious: Yes (Other)
  Sender: FDA-Public Use
  Company Number: 2012-00403

PATIENT
  Age: 69 Year
  Sex: Female
  Weight: 56.27 kg

DRUGS (4)
  1. VALSARTAN [Concomitant]
  2. LISINOPRIL [Suspect]
     Indication: PRODUCT USED FOR UNKNOWN INDICATION
     Dates: start: 20120227
  3. ASPIRIN [Concomitant]
  4. BENDROFLUMETHIAZIDE [Concomitant]

REACTIONS (2)
  - CHOKING [None]
  - PHARYNGEAL OEDEMA [None]
